FAERS Safety Report 8423394-9 (Version None)
Quarter: 2012Q2

REPORT INFORMATION
  Report Type: 
  Country: None (occurrence: None)
  Receive Date: 20120608
  Receipt Date: 20120525
  Transmission Date: 20120825
  Serious: Yes (Other)
  Sender: FDA-Public Use
  Company Number: PL-CELGENEUS-129-50794-12052138

PATIENT
  Age: 61 Year
  Sex: Male

DRUGS (1)
  1. VIDAZA [Suspect]
     Route: 065
     Dates: start: 20110201

REACTIONS (2)
  - CHLOROMA [None]
  - MALAISE [None]
